FAERS Safety Report 12629901 (Version 1)
Quarter: 2016Q3

REPORT INFORMATION
  Report Type: Spontaneous
  Country: CH (occurrence: CH)
  Receive Date: 20160808
  Receipt Date: 20160808
  Transmission Date: 20161109
  Serious: Yes (Hospitalization)
  Sender: FDA-Public Use
  Company Number: CH-PFIZER INC-2016370610

PATIENT
  Age: 78 Year
  Sex: Female

DRUGS (6)
  1. LANTUS [Concomitant]
     Active Substance: INSULIN GLARGINE
     Dosage: UNK, DAILY (16 U/ DAY)
  2. COUMADIN [Concomitant]
     Active Substance: WARFARIN SODIUM
     Dosage: UNK
  3. NOVORAPID [Concomitant]
     Active Substance: INSULIN ASPART
     Dosage: UNK, DAILY (30 U/DAY)
  4. ENALAPRIL [Concomitant]
     Active Substance: ENALAPRIL
     Dosage: 10 MG, DAILY
  5. EUTHYROX [Concomitant]
     Active Substance: LEVOTHYROXINE SODIUM
     Dosage: 75 UG, DAILY
  6. CORDARONE [Suspect]
     Active Substance: AMIODARONE HYDROCHLORIDE
     Dosage: UNK
     Route: 048
     Dates: end: 201601

REACTIONS (3)
  - Hypothyroidism [Unknown]
  - Electrocardiogram QT prolonged [Recovering/Resolving]
  - Gastroenteritis viral [Unknown]

NARRATIVE: CASE EVENT DATE: 2016
